FAERS Safety Report 5073763-2 (Version None)
Quarter: 2006Q3

REPORT INFORMATION
  Report Type: 
  Country: None (occurrence: None)
  Receive Date: 20060808
  Receipt Date: 20060505
  Transmission Date: 20061208
  Serious: No
  Sender: FDA-Public Use
  Company Number: US-AMGEN-KDL178966

PATIENT
  Age: 60 Year
  Sex: Female

DRUGS (3)
  1. PROCRIT [Suspect]
     Indication: ANAEMIA OF MALIGNANT DISEASE
  2. CARBOPLATIN [Concomitant]
  3. TAXOL [Concomitant]

REACTIONS (2)
  - DRUG INEFFECTIVE [None]
  - VAGINAL HAEMORRHAGE [None]
